FAERS Safety Report 16608302 (Version 1)
Quarter: 2019Q3

REPORT INFORMATION
  Report Type: Spontaneous
  Country: FI (occurrence: FI)
  Receive Date: 20190722
  Receipt Date: 20190722
  Transmission Date: 20191004
  Serious: Yes (Disabling)
  Sender: FDA-Public Use
  Company Number: FI-TEVA-2019-FI-1079935

PATIENT
  Age: 53 Year
  Sex: Female

DRUGS (2)
  1. KEFEXIN [Concomitant]
     Active Substance: CEPHALEXIN
     Indication: DIVERTICULITIS
     Dosage: 1500,MG,DAILY
     Route: 048
     Dates: start: 20170909, end: 20170919
  2. METRONIDAZOL RATIOPHARM [Suspect]
     Active Substance: METRONIDAZOLE
     Indication: DIVERTICULITIS
     Dosage: 1500,MG,DAILY
     Route: 048
     Dates: start: 20170909, end: 20170919

REACTIONS (1)
  - Small fibre neuropathy [Not Recovered/Not Resolved]

NARRATIVE: CASE EVENT DATE: 20170909
